FAERS Safety Report 6495934-0 (Version None)
Quarter: 2009Q4

REPORT INFORMATION
  Report Type: 
  Country: None (occurrence: None)
  Receive Date: 20091214
  Receipt Date: 20090831
  Transmission Date: 20100525
  Serious: No
  Sender: FDA-Public Use
  Company Number: US-BRISTOL-MYERS SQUIBB COMPANY-14760896

PATIENT
  Age: 23 Year
  Sex: Female
  Weight: 118 kg

DRUGS (3)
  1. ABILIFY [Suspect]
     Indication: DEPRESSION
     Dosage: STARTED WITH 5MG, THEN DOSE INCREASED TO 10MG, DOSE REDUCED TO 5MG
  2. EFFEXOR [Concomitant]
  3. BUSPAR [Concomitant]

REACTIONS (1)
  - PARAESTHESIA [None]
